FAERS Safety Report 15275969 (Version 1)
Quarter: 2018Q3

REPORT INFORMATION
  Report Type: Report from Study
  Country: None (occurrence: US)
  Receive Date: 20180814
  Receipt Date: 20180814
  Transmission Date: 20181010
  Serious: Yes (Other)
  Sender: FDA-Public Use
  Company Number: US-ABBVIE-18S-163-2447433-00

PATIENT
  Sex: Male
  Weight: 88.53 kg

DRUGS (4)
  1. FIRMAGON [Suspect]
     Active Substance: DEGARELIX ACETATE
     Indication: PROSTATE CANCER
     Route: 058
     Dates: start: 20180604
  2. LUPRON [Suspect]
     Active Substance: LEUPROLIDE ACETATE
     Indication: PROSTATE CANCER
     Route: 065
  3. BICALUTAMIDE. [Suspect]
     Active Substance: BICALUTAMIDE
     Indication: PROSTATE CANCER
     Route: 065
  4. FIRMAGON [Suspect]
     Active Substance: DEGARELIX ACETATE
     Route: 058
     Dates: start: 20180501

REACTIONS (7)
  - Injection site haemorrhage [Unknown]
  - Injection site erythema [Unknown]
  - Fatigue [Unknown]
  - Injection site swelling [Unknown]
  - Injection site nodule [Unknown]
  - Atrial fibrillation [Unknown]
  - Mobility decreased [Unknown]
